FAERS Safety Report 18980490 (Version 1)
Quarter: 2021Q1

REPORT INFORMATION
  Report Type: Spontaneous
  Country: US (occurrence: US)
  Receive Date: 20210308
  Receipt Date: 20210308
  Transmission Date: 20210420
  Serious: Yes (Hospitalization, Other)
  Sender: FDA-Public Use
  Company Number: US-BRISTOL-MYERS SQUIBB COMPANY-BMS-2021-019290

PATIENT
  Sex: Male

DRUGS (1)
  1. SPRYCEL [Suspect]
     Active Substance: DASATINIB
     Indication: MYELOID LEUKAEMIA
     Dosage: 50 MILLIGRAM, QOD
     Route: 048
     Dates: start: 201710

REACTIONS (4)
  - Pulmonary oedema [Recovering/Resolving]
  - Off label use [Unknown]
  - Fatigue [Unknown]
  - Eye disorder [Unknown]
